FAERS Safety Report 21343039 (Version 1)
Quarter: 2022Q3

REPORT INFORMATION
  Report Type: Spontaneous
  Country: US (occurrence: US)
  Receive Date: 20220916
  Receipt Date: 20220916
  Transmission Date: 20221027
  Serious: No
  Sender: FDA-Public Use
  Company Number: US-PFIZER INC-202201166445

PATIENT
  Age: 84 Year
  Sex: Male

DRUGS (2)
  1. PAXLOVID [Suspect]
     Active Substance: NIRMATRELVIR\RITONAVIR
     Indication: COVID-19 treatment
     Dosage: UNK
  2. ALFUZOSIN [Suspect]
     Active Substance: ALFUZOSIN
     Dosage: UNK

REACTIONS (2)
  - Contraindicated product prescribed [Unknown]
  - Circumstance or information capable of leading to medication error [Unknown]
